FAERS Safety Report 9293380 (Version 1)
Quarter: 2013Q2

REPORT INFORMATION
  Report Type: Report from Study
  Country: US (occurrence: US)
  Receive Date: 20130516
  Receipt Date: 20130516
  Transmission Date: 20140414
  Serious: Yes (Hospitalization)
  Sender: FDA-Public Use
  Company Number: US-BAYER-2013-042747

PATIENT
  Age: 35 Year
  Sex: Female

DRUGS (1)
  1. BETASERON [Suspect]
     Indication: RELAPSING-REMITTING MULTIPLE SCLEROSIS
     Dosage: 8 MIU, QOD
     Route: 058
     Dates: start: 20130207, end: 20130405

REACTIONS (8)
  - Injection site cellulitis [Recovering/Resolving]
  - Sepsis [Recovering/Resolving]
  - Pyrexia [Recovering/Resolving]
  - Injection site pain [Recovering/Resolving]
  - Injection site ulcer [Recovering/Resolving]
  - Injection site mass [Recovering/Resolving]
  - Nervousness [Not Recovered/Not Resolved]
  - Abasia [Recovering/Resolving]
